FAERS Safety Report 23797596 (Version 1)
Quarter: 2024Q2

REPORT INFORMATION
  Report Type: Spontaneous
  Country: RS (occurrence: RS)
  Receive Date: 20240430
  Receipt Date: 20240430
  Transmission Date: 20240716
  Serious: Yes (Hospitalization, Other)
  Sender: FDA-Public Use
  Company Number: RS-BRISTOL-MYERS SQUIBB COMPANY-2024-064796

PATIENT
  Age: 55 Year
  Sex: Female

DRUGS (3)
  1. OPDIVO [Suspect]
     Active Substance: NIVOLUMAB
     Indication: Metastatic malignant melanoma
     Route: 042
     Dates: start: 202311, end: 202401
  2. OPDIVO [Suspect]
     Active Substance: NIVOLUMAB
     Dates: start: 202401
  3. YERVOY [Suspect]
     Active Substance: IPILIMUMAB
     Indication: Metastatic malignant melanoma
     Route: 042
     Dates: start: 202311, end: 202401

REACTIONS (9)
  - Immune-mediated enterocolitis [Unknown]
  - Rash [Unknown]
  - Pruritus [Unknown]
  - Pyrexia [Unknown]
  - Altered state of consciousness [Unknown]
  - Infection [Unknown]
  - Blood thyroid stimulating hormone decreased [Unknown]
  - Asthenia [Unknown]
  - Off label use [Unknown]

NARRATIVE: CASE EVENT DATE: 20240101
